FAERS Safety Report 7913449 (Version 9)
Quarter: 2016Q4

REPORT INFORMATION
  Report Type: Spontaneous
  Country: US (occurrence: US)
  Receive Date: 20110425
  Receipt Date: 20161019
  Transmission Date: 20170207
  Serious: Yes (Hospitalization, Other)
  Sender: FDA-Public Use
  Company Number: US-009507513-1104USA02221

PATIENT
  Sex: Female
  Weight: 70.3 kg

DRUGS (6)
  1. HORMONES (UNSPECIFIED) [Concomitant]
     Active Substance: UNSPECIFIED INGREDIENT
     Indication: PRODUCT USED FOR UNKNOWN INDICATION
     Dosage: UNK, UNKNOWN
     Route: 065
     Dates: start: 1996, end: 2011
  2. MK-9278 [Concomitant]
     Active Substance: VITAMINS
     Indication: PRODUCT USED FOR UNKNOWN INDICATION
     Dosage: UNK, UNKNOWN
     Route: 065
  3. CALCIUM (UNSPECIFIED) [Concomitant]
     Active Substance: CALCIUM
     Indication: PRODUCT USED FOR UNKNOWN INDICATION
     Dosage: UNK, UNKNOWN
     Route: 065
  4. FOSAMAX [Suspect]
     Active Substance: ALENDRONATE SODIUM
     Indication: OSTEOPOROSIS
     Dosage: 70 MG, QW
     Route: 048
     Dates: start: 1996
  5. FOSAMAX [Suspect]
     Active Substance: ALENDRONATE SODIUM
     Dosage: 10 MG, QD
     Route: 048
     Dates: start: 19970315, end: 19980423
  6. FOSAMAX [Suspect]
     Active Substance: ALENDRONATE SODIUM
     Dosage: 70 MG, QW
     Route: 048
     Dates: end: 2010

REACTIONS (78)
  - Dyspnoea [Unknown]
  - Spondylolisthesis [Not Recovered/Not Resolved]
  - Joint dislocation [Unknown]
  - Osteopenia [Not Recovered/Not Resolved]
  - Lumbar radiculopathy [Not Recovered/Not Resolved]
  - Fall [Unknown]
  - Fall [Unknown]
  - Fall [Unknown]
  - Hyperlipidaemia [Not Recovered/Not Resolved]
  - Meniere^s disease [Unknown]
  - Adverse drug reaction [Unknown]
  - Aortic disorder [Unknown]
  - Fall [Unknown]
  - Cardiomegaly [Unknown]
  - Fall [Unknown]
  - Foot fracture [Unknown]
  - Orthostatic intolerance [Unknown]
  - Neoplasm malignant [Unknown]
  - Nephropathy [Unknown]
  - Femoral neck fracture [Unknown]
  - Pyelonephritis [Unknown]
  - Metabolic acidosis [Recovering/Resolving]
  - Blood cholesterol increased [Not Recovered/Not Resolved]
  - Tremor [Unknown]
  - Aphakia [Unknown]
  - Hypokalaemia [Unknown]
  - Hydronephrosis [Unknown]
  - Rash pruritic [Unknown]
  - Nephrolithiasis [Unknown]
  - Fracture nonunion [Not Recovered/Not Resolved]
  - Asthma [Not Recovered/Not Resolved]
  - Viral infection [Unknown]
  - Cataract [Unknown]
  - Urinary incontinence [Unknown]
  - Head injury [Unknown]
  - Cardiac disorder [Unknown]
  - Strabismus [Unknown]
  - Escherichia infection [Unknown]
  - Pneumonia [Unknown]
  - Hypertension [Not Recovered/Not Resolved]
  - Nephrolithiasis [Unknown]
  - Fall [Unknown]
  - Head injury [Unknown]
  - Scoliosis [Unknown]
  - Spinal osteoarthritis [Unknown]
  - Cervical radiculopathy [Unknown]
  - Intervertebral disc degeneration [Unknown]
  - Peripheral swelling [Unknown]
  - Femur fracture [Recovered/Resolved with Sequelae]
  - Chronic obstructive pulmonary disease [Unknown]
  - Hiatus hernia [Unknown]
  - Fracture nonunion [Unknown]
  - Abdominal pain [Unknown]
  - Nephrolithiasis [Unknown]
  - Eye disorder [Unknown]
  - Sleep apnoea syndrome [Unknown]
  - Back pain [Unknown]
  - Vertigo [Unknown]
  - Oedema peripheral [Unknown]
  - Femoral neck fracture [Unknown]
  - Nystagmus [Unknown]
  - Contusion [Unknown]
  - Fall [Unknown]
  - Pelvi-ureteric obstruction [Unknown]
  - Laceration [Unknown]
  - Spinal compression fracture [Unknown]
  - Peripheral venous disease [Unknown]
  - Muscle disorder [Unknown]
  - Anaemia [Unknown]
  - Stasis dermatitis [Unknown]
  - Atelectasis [Unknown]
  - Pyuria [Unknown]
  - Myofascial pain syndrome [Unknown]
  - Foot fracture [Not Recovered/Not Resolved]
  - Diplegia [Unknown]
  - Tendonitis [Unknown]
  - Fall [Unknown]
  - Compression fracture [Unknown]

NARRATIVE: CASE EVENT DATE: 199912
